FAERS Safety Report 5237008-2 (Version None)
Quarter: 2007Q1

REPORT INFORMATION
  Report Type: 
  Country: None (occurrence: None)
  Receive Date: 20070213
  Receipt Date: 20070202
  Transmission Date: 20070707
  Serious: Yes (Hospitalization)
  Sender: FDA-Public Use
  Company Number: FR-ROCHE-481416

PATIENT
  Age: 75 Year
  Sex: Female

DRUGS (4)
  1. BONVIVA [Suspect]
     Indication: OSTEOPOROSIS
     Route: 048
     Dates: start: 20070202
  2. VITAMINE D [Concomitant]
  3. CALCIUM [Concomitant]
  4. OMEPRAZOLE [Concomitant]

REACTIONS (3)
  - DIZZINESS [None]
  - FALL [None]
  - WRIST FRACTURE [None]
